FAERS Safety Report 5069045-5 (Version None)
Quarter: 2006Q3

REPORT INFORMATION
  Report Type: 
  Country: None (occurrence: None)
  Receive Date: 20060731
  Receipt Date: 20060724
  Transmission Date: 20061208
  Serious: Yes (Death)
  Sender: FDA-Public Use
  Company Number: 227808

PATIENT
  Age: 58 Year
  Sex: Female

DRUGS (6)
  1. XOLAIR [Suspect]
     Indication: ASTHMA
     Dosage: 150 MG, 1/MONTH, SUBCUTANEOUS
     Route: 058
     Dates: start: 20050318
  2. QVAR 40 [Concomitant]
  3. FLORTIL (ANTIDIARRHEALS) [Concomitant]
  4. GLUCOPHAGE [Concomitant]
  5. NEBULIZER (UNK INGREDIENTS) (RESPIRATORY TREATMENTS AND DEVICES) [Concomitant]
  6. PREDNISONE [Concomitant]

REACTIONS (3)
  - CARDIAC ARREST [None]
  - CARDIAC FAILURE [None]
  - RESPIRATORY FAILURE [None]
